FAERS Safety Report 15994737 (Version 2)
Quarter: 2019Q1

REPORT INFORMATION
  Report Type: Spontaneous
  Country: DE (occurrence: DE)
  Receive Date: 20190222
  Receipt Date: 20190228
  Transmission Date: 20190418
  Serious: Yes (Death)
  Sender: FDA-Public Use
  Company Number: PHHY2019DE041061

PATIENT
  Sex: Female
  Weight: 63 kg

DRUGS (2)
  1. TAFINLAR [Suspect]
     Active Substance: DABRAFENIB MESYLATE
     Indication: NON-SMALL CELL LUNG CANCER
     Dosage: 300 MG, QD
     Route: 048
     Dates: start: 20190105, end: 20190205
  2. MEKINIST [Suspect]
     Active Substance: TRAMETINIB DIMETHYL SULFOXIDE
     Indication: NON-SMALL CELL LUNG CANCER
     Dosage: 2 MG, QD
     Route: 048
     Dates: start: 20190105, end: 20190205

REACTIONS (2)
  - Pneumonia aspiration [Fatal]
  - Sepsis [Fatal]

NARRATIVE: CASE EVENT DATE: 20190205
